FAERS Safety Report 19012794 (Version 1)
Quarter: 2021Q1

REPORT INFORMATION
  Report Type: Report from Study
  Country: US (occurrence: US)
  Receive Date: 20210316
  Receipt Date: 20210316
  Transmission Date: 20210420
  Serious: Yes (Hospitalization)
  Sender: FDA-Public Use
  Company Number: US-EISAI MEDICAL RESEARCH-EC-2021-088393

PATIENT
  Age: 77 Year
  Sex: Male
  Weight: 77.1 kg

DRUGS (12)
  1. ENALAPRIL?HCTZ [Concomitant]
  2. XARELTO [Concomitant]
     Active Substance: RIVAROXABAN
  3. LATANOPROST. [Concomitant]
     Active Substance: LATANOPROST
  4. METHADONE [Concomitant]
     Active Substance: METHADONE HYDROCHLORIDE
  5. ARTIFICIAL TEARS [Concomitant]
     Active Substance: GLYCERIN\HYPROMELLOSES\POLYETHYLENE GLYCOL 400
  6. MORPHINE SULPHATE [Concomitant]
     Active Substance: MORPHINE SULFATE
  7. LACTULOSE. [Concomitant]
     Active Substance: LACTULOSE
  8. COLACE [Concomitant]
     Active Substance: DOCUSATE SODIUM
  9. LIDODERM [Concomitant]
     Active Substance: LIDOCAINE
  10. VERAPAMIL HCL [Concomitant]
     Active Substance: VERAPAMIL HYDROCHLORIDE
  11. LENVIMA [Suspect]
     Active Substance: LENVATINIB
     Indication: HEPATOCELLULAR CARCINOMA
     Route: 048
     Dates: start: 20210213, end: 20210226
  12. PREDNISONE. [Concomitant]
     Active Substance: PREDNISONE

REACTIONS (8)
  - Disorientation [Unknown]
  - Cough [Unknown]
  - Rash [Unknown]
  - Fatigue [Unknown]
  - Arthralgia [Unknown]
  - Pain [Unknown]
  - Epistaxis [Unknown]
  - Decreased appetite [Unknown]

NARRATIVE: CASE EVENT DATE: 202102
